FAERS Safety Report 7531178-9 (Version None)
Quarter: 2011Q2

REPORT INFORMATION
  Report Type: 
  Country: None (occurrence: None)
  Receive Date: 20110608
  Receipt Date: 20110603
  Transmission Date: 20111010
  Serious: No
  Sender: FDA-Public Use
  Company Number: JP-ABBOTT-11P-087-0729018-00

PATIENT
  Sex: Male

DRUGS (16)
  1. NIKORANMART [Concomitant]
     Indication: PRODUCT USED FOR UNKNOWN INDICATION
  2. PLAVIX [Concomitant]
     Indication: PRODUCT USED FOR UNKNOWN INDICATION
  3. CETILO COMPOUND TAB [Concomitant]
     Indication: PRODUCT USED FOR UNKNOWN INDICATION
  4. OMEPRAZOLE [Concomitant]
     Indication: PRODUCT USED FOR UNKNOWN INDICATION
  5. VOLTAREN [Suspect]
     Indication: ANALGESIC THERAPY
     Dates: start: 20110311, end: 20110312
  6. ONEALFA [Concomitant]
     Indication: PRODUCT USED FOR UNKNOWN INDICATION
  7. ALLORIN [Concomitant]
     Indication: PRODUCT USED FOR UNKNOWN INDICATION
  8. ELPINAN [Concomitant]
     Indication: PRODUCT USED FOR UNKNOWN INDICATION
  9. AMLODIPINE TOWA [Concomitant]
     Indication: PRODUCT USED FOR UNKNOWN INDICATION
  10. PERORIC [Concomitant]
     Indication: PRODUCT USED FOR UNKNOWN INDICATION
  11. TEPRENONE [Concomitant]
     Indication: PRODUCT USED FOR UNKNOWN INDICATION
  12. LOXONIN [Concomitant]
     Indication: PRODUCT USED FOR UNKNOWN INDICATION
  13. CLARITHROMYCIN [Suspect]
     Dates: start: 20110520, end: 20110520
  14. CLARITHROMYCIN [Suspect]
     Indication: PERIODONTITIS
     Route: 048
     Dates: start: 20110311, end: 20110315
  15. GASLON N [Concomitant]
     Indication: PRODUCT USED FOR UNKNOWN INDICATION
  16. MAIBASTAN [Concomitant]
     Indication: PRODUCT USED FOR UNKNOWN INDICATION

REACTIONS (2)
  - POLLAKIURIA [None]
  - MUSCULAR WEAKNESS [None]
